FAERS Safety Report 6771592-2 (Version None)
Quarter: 2010Q2

REPORT INFORMATION
  Report Type: 
  Country: None (occurrence: None)
  Receive Date: 20100616
  Receipt Date: 20100602
  Transmission Date: 20101027
  Serious: Yes (Life-Threatening, Other)
  Sender: FDA-Public Use
  Company Number: PHHY2010NL36779

PATIENT
  Age: 28 Year
  Sex: Male

DRUGS (4)
  1. METOPROLOL [Suspect]
     Indication: SINUS TACHYCARDIA
  2. AMITRIPTYLINE [Suspect]
     Indication: NEURALGIA
  3. VANCOMYCIN [Suspect]
     Indication: STAPHYLOCOCCAL INFECTION
     Dosage: UNK
  4. FLOXACILLIN SODIUM [Concomitant]
     Indication: STAPHYLOCOCCAL INFECTION

REACTIONS (9)
  - ACUTE LUNG INJURY [None]
  - DIARRHOEA [None]
  - DRUG RASH WITH EOSINOPHILIA AND SYSTEMIC SYMPTOMS [None]
  - ERYTHEMA [None]
  - HEPATITIS [None]
  - OEDEMA [None]
  - PYREXIA [None]
  - RENAL FAILURE [None]
  - SHOCK [None]
